FAERS Safety Report 23108410 (Version 1)
Quarter: 2023Q4

REPORT INFORMATION
  Report Type: Spontaneous
  Country: US (occurrence: US)
  Receive Date: 20231026
  Receipt Date: 20231026
  Transmission Date: 20240110
  Serious: Yes (Disabling, Other)
  Sender: FDA-Public Use
  Company Number: US-002147023-NVSC2023US228235

PATIENT
  Age: 70 Year
  Sex: Male

DRUGS (1)
  1. LEQVIO [Suspect]
     Active Substance: INCLISIRAN SODIUM
     Indication: Hyperlipidaemia
     Dosage: 284 MG (Q6 MONTHS)
     Route: 058
     Dates: start: 20230713, end: 20230713

REACTIONS (1)
  - Cellulitis gangrenous [Recovering/Resolving]

NARRATIVE: CASE EVENT DATE: 20230713
